FAERS Safety Report 4695181-9 (Version None)
Quarter: 2005Q2

REPORT INFORMATION
  Report Type: 
  Country: None (occurrence: None)
  Receive Date: 20050614
  Receipt Date: 20050120
  Transmission Date: 20051028
  Serious: No
  Sender: FDA-Public Use
  Company Number: USA050188922

PATIENT
  Age: 62 Year
  Sex: Male
  Weight: 100 kg

DRUGS (9)
  1. CIALIS [Suspect]
     Dosage: 20 MG
  2. PRAVACHOL [Concomitant]
  3. LISINOPRIL AND HYDROCHLOROTHIAZIDE [Concomitant]
  4. PLAVIX [Concomitant]
  5. TOPROL-XL [Concomitant]
  6. ASPIRIN [Concomitant]
  7. MULTIVITAMIN [Concomitant]
  8. GLUCOSAMINE CHONDROITIN [Concomitant]
  9. FISH OIL [Concomitant]

REACTIONS (1)
  - THERAPEUTIC RESPONSE DECREASED [None]
